FAERS Safety Report 15954176 (Version 3)
Quarter: 2019Q2

REPORT INFORMATION
  Report Type: Report from Study
  Country: US (occurrence: US)
  Receive Date: 20190212
  Receipt Date: 20190405
  Transmission Date: 20190711
  Serious: Yes (Death, Hospitalization)
  Sender: FDA-Public Use
  Company Number: US-ACTELION-A-NJ2018-183505

PATIENT
  Sex: Male
  Weight: 46.26 kg

DRUGS (8)
  1. EPINEPHRINE. [Concomitant]
     Active Substance: EPINEPHRINE
  2. REVATIO [Concomitant]
     Active Substance: SILDENAFIL CITRATE
  3. DIGOXIN. [Concomitant]
     Active Substance: DIGOXIN
  4. BOSENTAN TABLET 32 MG PED US [Suspect]
     Active Substance: BOSENTAN
     Indication: PULMONARY HYPERTENSION
     Dosage: 32 MG, BID
     Route: 048
  5. FLOLAN [Concomitant]
     Active Substance: EPOPROSTENOL SODIUM
  6. BOSENTAN TABLET 32 MG PED US [Suspect]
     Active Substance: BOSENTAN
     Dosage: 125 MG. BID
     Route: 048
     Dates: end: 20190206
  7. LASIX [Concomitant]
     Active Substance: FUROSEMIDE
  8. SILDENAFIL. [Concomitant]
     Active Substance: SILDENAFIL
     Dosage: 20 MG Q8 HRS

REACTIONS (8)
  - Disease progression [Fatal]
  - Weight increased [Unknown]
  - Increased appetite [Unknown]
  - Respiratory distress [Unknown]
  - Respiratory syncytial virus infection [Unknown]
  - Respiratory failure [Fatal]
  - Pulmonary hypertension [Fatal]
  - Product dose omission [Unknown]
